FAERS Safety Report 5684793-1 (Version None)
Quarter: 2008Q1

REPORT INFORMATION
  Report Type: 
  Country: None (occurrence: None)
  Receive Date: 20080328
  Receipt Date: 20071025
  Transmission Date: 20080703
  Serious: Yes (Other)
  Sender: FDA-Public Use
  Company Number: US-BRISTOL-MYERS SQUIBB COMPANY-13920780

PATIENT
  Age: 59 Year
  Sex: Female

DRUGS (8)
  1. ERBITUX [Suspect]
     Indication: COLORECTAL CANCER METASTATIC
     Route: 042
     Dates: start: 20070906, end: 20070906
  2. CPT-11 [Concomitant]
  3. FLUOROURACIL [Concomitant]
  4. LEUCOVORIN CALCIUM [Concomitant]
  5. ALOXI [Concomitant]
     Indication: PREMEDICATION
     Dates: start: 20070906
  6. DEXAMETHASONE TAB [Concomitant]
     Indication: PREMEDICATION
     Dates: start: 20070906
  7. DIPHENHYDRAMINE HCL [Concomitant]
     Indication: PREMEDICATION
     Dates: start: 20070906
  8. LORAZEPAM [Concomitant]
     Indication: PREMEDICATION
     Dates: start: 20070906

REACTIONS (7)
  - DYSARTHRIA [None]
  - ERYTHEMA [None]
  - INFUSION RELATED REACTION [None]
  - LIP SWELLING [None]
  - OXYGEN SATURATION DECREASED [None]
  - SWELLING FACE [None]
  - VOMITING [None]
